FAERS Safety Report 7782145-1 (Version None)
Quarter: 2011Q3

REPORT INFORMATION
  Report Type: 
  Country: None (occurrence: None)
  Receive Date: 20110927
  Receipt Date: 20110917
  Transmission Date: 20111222
  Serious: Yes (Other)
  Sender: FDA-Public Use
  Company Number: US-SANOFI-AVENTIS-2011SA060772

PATIENT
  Sex: Male

DRUGS (2)
  1. NOVOLOG [Concomitant]
  2. LANTUS [Suspect]
     Indication: TYPE 2 DIABETES MELLITUS
     Route: 058

REACTIONS (4)
  - ARTERIAL OCCLUSIVE DISEASE [None]
  - COMA [None]
  - CARDIAC ARREST [None]
  - BRAIN INJURY [None]
